FAERS Safety Report 9829060 (Version 2)
Quarter: 2014Q1

REPORT INFORMATION
  Report Type: Spontaneous
  Country: IN (occurrence: IN)
  Receive Date: 20140119
  Receipt Date: 20140119
  Transmission Date: 20141002
  Serious: Yes (Death, Life-Threatening, Hospitalization, Other)
  Sender: FDA-Public Use
  Company Number: IN-ASTRAZENECA-2014SE01897

PATIENT
  Age: 65 Year
  Sex: Male
  Weight: 65 kg

DRUGS (16)
  1. TICAGRELOR [Suspect]
     Indication: CORONARY ARTERY DISEASE
     Dosage: 180 MG LOADING DOSE
     Route: 048
     Dates: start: 20140101, end: 20140102
  2. TICAGRELOR [Suspect]
     Indication: ACUTE CORONARY SYNDROME
     Dosage: 180 MG LOADING DOSE
     Route: 048
     Dates: start: 20140101, end: 20140102
  3. TICAGRELOR [Suspect]
     Indication: VENTRICULAR ARRHYTHMIA
     Dosage: 180 MG LOADING DOSE
     Route: 048
     Dates: start: 20140101, end: 20140102
  4. TICAGRELOR [Suspect]
     Indication: CORONARY ANGIOPLASTY
     Dosage: 180 MG LOADING DOSE
     Route: 048
     Dates: start: 20140101, end: 20140102
  5. TICAGRELOR [Suspect]
     Indication: CORONARY ARTERY DISEASE
     Route: 048
     Dates: start: 20140101, end: 20140102
  6. TICAGRELOR [Suspect]
     Indication: ACUTE CORONARY SYNDROME
     Route: 048
     Dates: start: 20140101, end: 20140102
  7. TICAGRELOR [Suspect]
     Indication: VENTRICULAR ARRHYTHMIA
     Route: 048
     Dates: start: 20140101, end: 20140102
  8. TICAGRELOR [Suspect]
     Indication: CORONARY ANGIOPLASTY
     Route: 048
     Dates: start: 20140101, end: 20140102
  9. ASPIRIN [Suspect]
  10. FONDAPARINAUX [Concomitant]
  11. ATORVASTATIN [Concomitant]
     Indication: CORONARY ARTERY DISEASE
  12. RAMIPRIL [Concomitant]
     Indication: HYPERTENSION
  13. METOPROLOL [Concomitant]
     Indication: CORONARY ARTERY DISEASE
  14. CLOPIDOGREL [Concomitant]
     Indication: CORONARY ARTERY DISEASE
  15. CLOPIDOGREL [Concomitant]
     Indication: VENTRICULAR ARRHYTHMIA
  16. SUCCINATE XL [Concomitant]

REACTIONS (4)
  - Haemorrhage intracranial [Fatal]
  - Cardio-respiratory arrest [Fatal]
  - Angina unstable [Unknown]
  - Cerebrovascular accident [Unknown]
